FAERS Safety Report 8901539 (Version 1)
Quarter: 2012Q4

REPORT INFORMATION
  Report Type: 
  Country: FR (occurrence: FR)
  Receive Date: 20121109
  Receipt Date: 20121109
  Transmission Date: 20130627
  Serious: Yes (Other)
  Sender: FDA-Public Use
  Company Number: FR-BRISTOL-MYERS SQUIBB COMPANY-16681959

PATIENT
  Age: 42 Year
  Sex: Male
  Weight: 80 kg

DRUGS (1)
  1. ABILIFY [Suspect]
     Dosage: monotherapy,for about 1 year
Jun:8Nov:15mg,8Nov11:5Jun12:10mg
5Jn12:7.5mg (5mg every other day)
     Route: 048
     Dates: start: 201106, end: 20121003

REACTIONS (4)
  - Weight increased [Not Recovered/Not Resolved]
  - Dyslipidaemia [Not Recovered/Not Resolved]
  - Constipation [Not Recovered/Not Resolved]
  - Haemorrhoids [Not Recovered/Not Resolved]
